FAERS Safety Report 4766540-0 (Version None)
Quarter: 2005Q3

REPORT INFORMATION
  Report Type: 
  Country: None (occurrence: None)
  Receive Date: 20050909
  Receipt Date: 20050218
  Transmission Date: 20060218
  Serious: Yes (Other)
  Sender: FDA-Public Use
  Company Number: CHNY2005AU00461

PATIENT
  Age: 73 Year
  Sex: Male

DRUGS (5)
  1. NICOTINE [Suspect]
     Dosage: 1 PATCH, ONCE/SINGLE, TRANSDERMAL
     Route: 062
     Dates: start: 20050101, end: 20050102
  2. PANTOPRAZOLE SODIUM [Concomitant]
  3. COVERSYL (PERINDOPRIL ERBUMINE) [Concomitant]
  4. PLAVIX [Concomitant]
  5. ZOCOR [Concomitant]

REACTIONS (5)
  - AGEUSIA [None]
  - GLOSSITIS [None]
  - LIP DISCOLOURATION [None]
  - ORAL CANDIDIASIS [None]
  - TONGUE BLACK HAIRY [None]
